FAERS Safety Report 8764043 (Version 2)
Quarter: 2012Q4

REPORT INFORMATION
  Report Type: 
  Country: CA (occurrence: CA)
  Receive Date: 20120831
  Receipt Date: 20120912
  Transmission Date: 20130627
  Serious: Yes (Death)
  Sender: FDA-Public Use
  Company Number: CA-JNJFOC-20120814046

PATIENT

DRUGS (46)
  1. DOXORUBICIN [Suspect]
     Indication: CHROMOSOME ANALYSIS ABNORMAL
     Dosage: day 1 for central nervous system therapy
     Route: 042
  2. DOXORUBICIN [Suspect]
     Indication: CHROMOSOME ANALYSIS ABNORMAL
     Dosage: day 0 and 1 for induction therapy
     Route: 042
  3. DOXORUBICIN [Suspect]
     Indication: ACUTE LYMPHOCYTIC LEUKAEMIA
     Dosage: day 1 for central nervous system therapy
     Route: 042
  4. DOXORUBICIN [Suspect]
     Indication: ACUTE LYMPHOCYTIC LEUKAEMIA
     Dosage: day 0 and 1 for induction therapy
     Route: 042
  5. DOXORUBICIN [Suspect]
     Indication: CHROMOSOME ANALYSIS ABNORMAL
     Dosage: day 1 for central nervous system therapy
     Route: 042
  6. DOXORUBICIN [Suspect]
     Indication: CHROMOSOME ANALYSIS ABNORMAL
     Dosage: day 0 and 1 for induction therapy
     Route: 042
  7. DOXORUBICIN [Suspect]
     Indication: ACUTE LYMPHOCYTIC LEUKAEMIA
     Dosage: day 0 and 1 for induction therapy
     Route: 042
  8. DOXORUBICIN [Suspect]
     Indication: ACUTE LYMPHOCYTIC LEUKAEMIA
     Dosage: day 1 for central nervous system therapy
     Route: 042
  9. IMATINIB [Suspect]
     Indication: CHROMOSOME ANALYSIS ABNORMAL
     Dosage: days 1-14 central nervou system therapy
     Route: 048
  10. IMATINIB [Suspect]
     Indication: CHROMOSOME ANALYSIS ABNORMAL
     Dosage: days 2-14 for induction therapy
     Route: 048
  11. IMATINIB [Suspect]
     Indication: ACUTE LYMPHOCYTIC LEUKAEMIA
     Dosage: days 1-14 central nervou system therapy
     Route: 048
  12. IMATINIB [Suspect]
     Indication: ACUTE LYMPHOCYTIC LEUKAEMIA
     Dosage: days 2-14 for induction therapy
     Route: 048
  13. PREDNISONE [Suspect]
     Indication: CHROMOSOME ANALYSIS ABNORMAL
     Dosage: days 0-28 for induction therapy
     Route: 048
  14. PREDNISONE [Suspect]
     Indication: ACUTE LYMPHOCYTIC LEUKAEMIA
     Dosage: days 0-28 for induction therapy
     Route: 048
  15. VINCRISTINE [Suspect]
     Indication: CHROMOSOME ANALYSIS ABNORMAL
     Dosage: Days 0, 7, 14, 21 for induction therapy
     Route: 042
  16. VINCRISTINE [Suspect]
     Indication: CHROMOSOME ANALYSIS ABNORMAL
     Dosage: Day 1 for Central nervous system therapy
     Route: 042
  17. VINCRISTINE [Suspect]
     Indication: ACUTE LYMPHOCYTIC LEUKAEMIA
     Dosage: Days 0, 7, 14, 21 for induction therapy
     Route: 042
  18. VINCRISTINE [Suspect]
     Indication: ACUTE LYMPHOCYTIC LEUKAEMIA
     Dosage: Day 1 for Central nervous system therapy
     Route: 042
  19. METHOTREXATE [Suspect]
     Indication: CHROMOSOME ANALYSIS ABNORMAL
     Dosage: over 1 hour, day 2 with leucovorin rescue for induction therapy
     Route: 042
  20. METHOTREXATE [Suspect]
     Indication: ACUTE LYMPHOCYTIC LEUKAEMIA
     Dosage: over 1 hour, day 2 with leucovorin rescue for induction therapy
     Route: 042
  21. METHOTREXATE [Suspect]
     Indication: CHROMOSOME ANALYSIS ABNORMAL
     Dosage: day 0-14 for induction therapy
     Route: 039
  22. METHOTREXATE [Suspect]
     Indication: CHROMOSOME ANALYSIS ABNORMAL
     Dosage: day 1, 4, 8, 11 for central nervous system therapy
     Route: 039
  23. METHOTREXATE [Suspect]
     Indication: ACUTE LYMPHOCYTIC LEUKAEMIA
     Dosage: day 0-14 for induction therapy
     Route: 039
  24. METHOTREXATE [Suspect]
     Indication: ACUTE LYMPHOCYTIC LEUKAEMIA
     Dosage: day 1, 4, 8, 11 for central nervous system therapy
     Route: 039
  25. ASPARAGINASE [Suspect]
     Indication: CHROMOSOME ANALYSIS ABNORMAL
     Dosage: 25000 IU/m2 day 4 for induction therapy
     Route: 030
  26. ASPARAGINASE [Suspect]
     Indication: ACUTE LYMPHOCYTIC LEUKAEMIA
     Dosage: 25000 IU/m2 day 4 for induction therapy
     Route: 030
  27. CYTARABINE [Suspect]
     Indication: CHROMOSOME ANALYSIS ABNORMAL
     Dosage: days 1, 4, 8 ,11 for CNS  therapy
     Route: 039
  28. CYTARABINE [Suspect]
     Indication: CHROMOSOME ANALYSIS ABNORMAL
     Dosage: days 0,14 for induction therapy
     Route: 039
  29. CYTARABINE [Suspect]
     Indication: ACUTE LYMPHOCYTIC LEUKAEMIA
     Dosage: days 1, 4, 8 ,11 for CNS  therapy
     Route: 039
  30. CYTARABINE [Suspect]
     Indication: ACUTE LYMPHOCYTIC LEUKAEMIA
     Dosage: days 0,14 for induction therapy
     Route: 039
  31. HYDROCORTISONE [Suspect]
     Indication: CHROMOSOME ANALYSIS ABNORMAL
     Dosage: days 1, 4, 8 ,11 for CNS  therapy
     Route: 039
  32. HYDROCORTISONE [Suspect]
     Indication: CHROMOSOME ANALYSIS ABNORMAL
     Dosage: days 0,14 for induction therapy
     Route: 039
  33. HYDROCORTISONE [Suspect]
     Indication: ACUTE LYMPHOCYTIC LEUKAEMIA
     Dosage: days 0,14 for induction therapy
     Route: 039
  34. HYDROCORTISONE [Suspect]
     Indication: ACUTE LYMPHOCYTIC LEUKAEMIA
     Dosage: days 1, 4, 8 ,11 for CNS  therapy
     Route: 039
  35. LEUCOVORIN [Suspect]
     Indication: CHROMOSOME ANALYSIS ABNORMAL
     Route: 065
  36. LEUCOVORIN [Suspect]
     Indication: ACUTE LYMPHOCYTIC LEUKAEMIA
     Route: 065
  37. 6-MERCAPTOPURINE [Suspect]
     Indication: CHROMOSOME ANALYSIS ABNORMAL
     Dosage: Days 1-14 in Central nervous system therapy
     Route: 048
  38. 6-MERCAPTOPURINE [Suspect]
     Indication: ACUTE LYMPHOCYTIC LEUKAEMIA
     Dosage: Days 1-14 in Central nervous system therapy
     Route: 048
  39. RADIATION THERAPY [Suspect]
     Indication: CHROMOSOME ANALYSIS ABNORMAL
     Dosage: 1200 cGy, over 8 days
     Route: 065
  40. RADIATION THERAPY [Suspect]
     Indication: ACUTE LYMPHOCYTIC LEUKAEMIA
     Dosage: 1200 cGy, over 8 days
     Route: 065
  41. FLUCONAZOLE [Concomitant]
     Indication: ANTIFUNGAL PROPHYLAXIS
     Route: 065
  42. TRIMETHOPRIM AND SULFAMETHOXAZOLE [Concomitant]
     Indication: ANTIFUNGAL PROPHYLAXIS
     Route: 065
  43. PENTAMIDINE [Concomitant]
     Indication: ANTIFUNGAL PROPHYLAXIS
     Route: 055
  44. CALCIUM AND VITAMIN D [Concomitant]
     Indication: PROPHYLAXIS
     Route: 065
  45. ALENDRONATE [Concomitant]
     Indication: PROPHYLAXIS
     Route: 065
  46. RISEDRONATE [Concomitant]
     Indication: PROPHYLAXIS
     Route: 065

REACTIONS (2)
  - Multi-organ failure [Fatal]
  - Off label use [Unknown]
